FAERS Safety Report 10101994 (Version 2)
Quarter: 2014Q2

REPORT INFORMATION
  Report Type: Spontaneous
  Country: US (occurrence: US)
  Receive Date: 20140424
  Receipt Date: 20140611
  Transmission Date: 20141212
  Serious: Yes (Death, Hospitalization, Other)
  Sender: FDA-Public Use
  Company Number: US-009507513-1404USA012651

PATIENT
  Sex: Male
  Weight: 104.31 kg

DRUGS (2)
  1. JANUMET [Suspect]
     Indication: TYPE 2 DIABETES MELLITUS
     Dosage: 50/500MG, BID
     Route: 048
     Dates: start: 20110121, end: 201202
  2. JANUMET [Suspect]
     Dosage: 50/1000 MG, BID
     Route: 048
     Dates: start: 201202, end: 20120625

REACTIONS (10)
  - Pancreatic carcinoma [Unknown]
  - Pancreaticoduodenectomy [Unknown]
  - Cardiogenic shock [Fatal]
  - Acute myocardial infarction [Fatal]
  - Hypercholesterolaemia [Unknown]
  - Hepatic cirrhosis [Unknown]
  - Temporomandibular joint syndrome [Unknown]
  - Tremor [Unknown]
  - Liver function test abnormal [Unknown]
  - Back pain [Unknown]
